FAERS Safety Report 4827826-4 (Version None)
Quarter: 2005Q4

REPORT INFORMATION
  Report Type: 
  Country: None (occurrence: None)
  Receive Date: 20051114
  Receipt Date: 20051114
  Transmission Date: 20060501
  Serious: Yes (Other)
  Sender: FDA-Public Use
  Company Number: None

PATIENT
  Age: 53 Year
  Sex: Female
  Weight: 65.7716 kg

DRUGS (1)
  1. DEPO-MEDROL [Suspect]

REACTIONS (8)
  - ABNORMAL BEHAVIOUR [None]
  - ASTHENIA [None]
  - BIPOLAR DISORDER [None]
  - CARDIAC STRESS TEST ABNORMAL [None]
  - DYSPNOEA EXERTIONAL [None]
  - FATIGUE [None]
  - LOSS OF EMPLOYMENT [None]
  - WEIGHT INCREASED [None]
